FAERS Safety Report 4432857-2 (Version None)
Quarter: 2004Q3

REPORT INFORMATION
  Report Type: 
  Country: None (occurrence: None)
  Receive Date: 20040823
  Receipt Date: 20040812
  Transmission Date: 20050211
  Serious: Yes (Death)
  Sender: FDA-Public Use
  Company Number: 2004-04-1183

PATIENT
  Age: 32 Year
  Sex: Female

DRUGS (5)
  1. TEMODAL [Suspect]
     Indication: GLIOBLASTOMA
     Dosage: 300 MG X5D Q3W ORAL
     Route: 048
     Dates: start: 20031001
  2. DEXAMETHASONE [Concomitant]
  3. NEXIUM [Concomitant]
  4. KYTRIL [Concomitant]
  5. GABAPENTIN [Concomitant]

REACTIONS (2)
  - PAIN [None]
  - THERAPEUTIC RESPONSE INCREASED [None]
